FAERS Safety Report 4896462-6 (Version None)
Quarter: 2006Q1

REPORT INFORMATION
  Report Type: 
  Country: None (occurrence: None)
  Receive Date: 20060126
  Receipt Date: 20060118
  Transmission Date: 20060701
  Serious: Yes (Other)
  Sender: FDA-Public Use
  Company Number: S06-USA-00218-01

PATIENT
  Age: 32 Year
  Sex: Female

DRUGS (14)
  1. LEXAPRO [Suspect]
     Indication: ANXIETY
     Dosage: 10 MG QD PO
     Route: 048
     Dates: start: 20030501
  2. LEXAPRO [Suspect]
     Indication: ANXIETY
     Dosage: 40 MG QD PO
     Route: 048
  3. LEXAPRO [Suspect]
     Indication: ANXIETY
     Dosage: 60 MG QD PO
     Route: 048
  4. LEXAPRO [Suspect]
     Indication: ANXIETY
     Dosage: 80 MG QD PO
     Route: 048
  5. LEXAPRO [Suspect]
     Indication: ANXIETY
     Dosage: 40 MG QD PO
     Route: 048
     Dates: start: 20050201, end: 20050201
  6. XANAX [Suspect]
     Indication: ANXIETY
     Dosage: 2 MG QD
     Dates: start: 20040101, end: 20040201
  7. XANAX [Suspect]
     Indication: ANXIETY
     Dosage: 1 MG QID
     Dates: start: 20040201
  8. XANAX [Suspect]
     Indication: ANXIETY
     Dates: end: 20041001
  9. BUSPAR [Concomitant]
  10. REMERON [Concomitant]
  11. WELLBUTRIN [Concomitant]
  12. EFFEXOR [Concomitant]
  13. KLONOPIN [Concomitant]
  14. PAXIL [Concomitant]

REACTIONS (9)
  - ABNORMAL BEHAVIOUR [None]
  - ALCOHOL WITHDRAWAL SYNDROME [None]
  - ALCOHOLISM [None]
  - CONDITION AGGRAVATED [None]
  - CONVULSION [None]
  - DRUG ABUSER [None]
  - DRUG WITHDRAWAL SYNDROME [None]
  - SELF-MEDICATION [None]
  - THINKING ABNORMAL [None]
